FAERS Safety Report 18710985 (Version 1)
Quarter: 2021Q1

REPORT INFORMATION
  Report Type: Spontaneous
  Country: US (occurrence: US)
  Receive Date: 20210107
  Receipt Date: 20210107
  Transmission Date: 20210419
  Serious: No
  Sender: FDA-Public Use
  Company Number: US-TEVA-2020-US-1833381

PATIENT
  Age: 71 Year
  Sex: Female

DRUGS (27)
  1. LORATADINE 10MG [Concomitant]
     Active Substance: LORATADINE
     Dosage: 10 MILLIGRAM DAILY; DAILY PO
     Route: 048
  2. PRAVASTATIN SODIUM 20MG [Concomitant]
     Dosage: PO Q D
  3. LEVOTHYROXINE SODIUM 125MCG [Concomitant]
     Dosage: TAKE 1/2 TAB QD AND A FULL TAB ON SAT
  4. MELATONIN [Concomitant]
     Active Substance: MELATONIN
     Indication: INSOMNIA
     Dosage: 2TABS PO Q HS, PM, INSOMNIA
     Route: 048
  5. AUSTEDO [Suspect]
     Active Substance: DEUTETRABENAZINE
     Indication: TARDIVE DYSKINESIA
     Dosage: 9MGBID+6MGBID
     Route: 065
     Dates: start: 20200817, end: 20200923
  6. CRANBERRY TABLETS [Concomitant]
     Dosage: 2 TABS
  7. LYSINE 1000MG [Concomitant]
  8. ISOSORBIDE DINITRATE 30MG [Concomitant]
     Dosage: Q AM
  9. FIORICET 50MG?300 [Concomitant]
     Dosage: TAKE 1 TO 2 CAPS QD PRN FOR H/A
  10. SINGULAIR [Concomitant]
     Active Substance: MONTELUKAST SODIUM
     Dosage: 10MG PO Q PM
     Route: 048
  11. DOXAZOSIN MESYLATE 2MG [Concomitant]
     Dosage: QHS
  12. FLOVENT HFA [Concomitant]
     Active Substance: FLUTICASONE PROPIONATE
     Route: 065
  13. FLOVENT HFA [Concomitant]
     Active Substance: FLUTICASONE PROPIONATE
     Dosage: 2PUFFS BID
  14. ALDACTONE 12.5 MG [Concomitant]
     Dosage: PO Q D
     Route: 048
  15. VITAMIN D3 1000UI [Concomitant]
     Dosage: Q AM
  16. CRANBERRY TABLETS [Concomitant]
     Dosage: BID
  17. FOLIC ACID 1MG [Concomitant]
     Active Substance: FOLIC ACID
     Dosage: 1MG DAILY PO
     Route: 048
  18. OMEPRAZOLE 20MG [Concomitant]
     Active Substance: OMEPRAZOLE
     Dosage: PO QD
     Route: 048
  19. ASPIRIN 81MG [Concomitant]
     Active Substance: ASPIRIN
     Dosage: PO QD
     Route: 048
  20. COLACE [Concomitant]
     Active Substance: DOCUSATE SODIUM
     Dosage: PO Q HS PRN
     Route: 048
  21. LOSARTAN POTASSIUM 100MG [Concomitant]
     Active Substance: LOSARTAN POTASSIUM
     Dosage: PO Q D
     Route: 048
  22. BENADRYL [Concomitant]
     Active Substance: DIPHENHYDRAMINE HYDROCHLORIDE
     Indication: INSOMNIA
     Dosage: 2TABS PO QHS PM
     Route: 048
  23. CULTURELLE DIGESTIVE HEALTH PROBIOTIC [Concomitant]
     Dosage: 1CAP BID
  24. CALCIUM CARBONATE 600MG [Concomitant]
     Dosage: 600 MILLIGRAM DAILY;
  25. VALTREX 500MG [Concomitant]
     Dosage: PO Q D
     Route: 065
  26. VITAMIN D3 1000UI [Concomitant]
     Dosage: PO Q D
     Route: 048
  27. HORSE CHESTNUT [Concomitant]
     Active Substance: HORSE CHESTNUT
     Indication: MUSCLE SPASMS
     Dosage: QC 1TAB Q HS

REACTIONS (3)
  - Dyspnoea [Recovered/Resolved]
  - Anxiety [Recovered/Resolved]
  - Insomnia [Recovered/Resolved]
